FAERS Safety Report 16114359 (Version 2)
Quarter: 2021Q2

REPORT INFORMATION
  Report Type: Spontaneous
  Country: US (occurrence: US)
  Receive Date: 20190325
  Receipt Date: 20210413
  Transmission Date: 20210716
  Serious: No
  Sender: FDA-Public Use
  Company Number: US-ALLERGAN-1906882US

PATIENT
  Sex: Female

DRUGS (2)
  1. LATISSE [Suspect]
     Active Substance: BIMATOPROST
     Indication: PRODUCT USED FOR UNKNOWN INDICATION
     Dosage: ACTUAL: 2 GTT ONCE AT NIGHT BEFORE BEDTIME
     Route: 061
  2. IRON [Concomitant]
     Active Substance: IRON

REACTIONS (1)
  - Dysmenorrhoea [Not Recovered/Not Resolved]
